FAERS Safety Report 19371889 (Version 1)
Quarter: 2021Q2

REPORT INFORMATION
  Report Type: Report from Study
  Country: GB (occurrence: GB)
  Receive Date: 20210604
  Receipt Date: 20210604
  Transmission Date: 20210717
  Serious: Yes (Other)
  Sender: FDA-Public Use
  Company Number: GB-ORION CORPORATION ORION PHARMA-21_00014560

PATIENT
  Age: 58 Year
  Sex: Female

DRUGS (2)
  1. BENEPALI [Suspect]
     Active Substance: ETANERCEPT
     Indication: RHEUMATOID ARTHRITIS
     Route: 058
     Dates: end: 202010
  2. METHOTREXATE (TRADE NAME UNKNOWN) [Suspect]
     Active Substance: METHOTREXATE
     Indication: PRODUCT USED FOR UNKNOWN INDICATION
     Route: 065

REACTIONS (25)
  - Dizziness [Unknown]
  - Urine abnormality [Unknown]
  - Fatigue [Unknown]
  - Urinary tract infection [Unknown]
  - Oral infection [Unknown]
  - COVID-19 [Unknown]
  - Depressed mood [Unknown]
  - Periodontitis [Unknown]
  - Musculoskeletal stiffness [Unknown]
  - Renal pain [Unknown]
  - Pain in extremity [Unknown]
  - Feeling hot [Unknown]
  - Peritonitis [Unknown]
  - Pruritus [Unknown]
  - Food allergy [Unknown]
  - Candida infection [Unknown]
  - Arthralgia [Unknown]
  - Appetite disorder [Unknown]
  - Tooth abscess [Unknown]
  - Poor quality sleep [Unknown]
  - Pain [Unknown]
  - Decreased appetite [Unknown]
  - Pain in jaw [Unknown]
  - Nephrolithiasis [Unknown]
  - Finger deformity [Unknown]
